FAERS Safety Report 13856049 (Version 1)
Quarter: 2017Q3

REPORT INFORMATION
  Report Type: Report from Study
  Country: US (occurrence: US)
  Receive Date: 20170810
  Receipt Date: 20170810
  Transmission Date: 20171127
  Serious: Yes (Hospitalization)
  Sender: FDA-Public Use
  Company Number: US-BAYER-2017-095069

PATIENT
  Age: 58 Year
  Sex: Female
  Weight: 76.19 kg

DRUGS (5)
  1. ADEMPAS [Suspect]
     Active Substance: RIOCIGUAT
     Indication: PULMONARY ARTERIAL HYPERTENSION
     Dosage: 1 MG, BID
     Dates: start: 2017
  2. VELETRI [Concomitant]
     Active Substance: EPOPROSTENOL
     Dosage: UNK
  3. ADEMPAS [Suspect]
     Active Substance: RIOCIGUAT
     Indication: PULMONARY ARTERIAL HYPERTENSION
     Dosage: 1 MG, TID
     Dates: start: 20170421
  4. ADEMPAS [Suspect]
     Active Substance: RIOCIGUAT
     Indication: PULMONARY ARTERIAL HYPERTENSION
     Dosage: 1 MG, TID
     Dates: start: 20170612
  5. OPSUMIT [Concomitant]
     Active Substance: MACITENTAN
     Dosage: UNK

REACTIONS (6)
  - Renal disorder [None]
  - Nausea [Not Recovered/Not Resolved]
  - Sinusitis [Unknown]
  - Dyspnoea [Unknown]
  - Diarrhoea [Unknown]
  - Inappropriate schedule of drug administration [None]

NARRATIVE: CASE EVENT DATE: 2017
